FAERS Safety Report 9149706 (Version 1)
Quarter: 2013Q1

REPORT INFORMATION
  Report Type: Spontaneous
  Country: US (occurrence: US)
  Receive Date: 20130308
  Receipt Date: 20130308
  Transmission Date: 20140127
  Serious: No
  Sender: FDA-Public Use
  Company Number: US-ENDO PHARMACEUTICALS INC.-OPCR20120459

PATIENT
  Age: 44 Year
  Sex: Male

DRUGS (2)
  1. OPANA ER [Suspect]
     Indication: PRODUCT USED FOR UNKNOWN INDICATION
     Route: 048
     Dates: start: 20120418, end: 201204
  2. OPANA ER [Concomitant]

REACTIONS (4)
  - Night sweats [Unknown]
  - Dry mouth [Unknown]
  - Withdrawal syndrome [Unknown]
  - Drug ineffective [Not Recovered/Not Resolved]
